FAERS Safety Report 4597083-5 (Version None)
Quarter: 2005Q1

REPORT INFORMATION
  Report Type: 
  Country: None (occurrence: None)
  Receive Date: 20050301
  Receipt Date: 20050216
  Transmission Date: 20050727
  Serious: Yes (Hospitalization)
  Sender: FDA-Public Use
  Company Number: 2005033550

PATIENT
  Age: 51 Year
  Sex: Male

DRUGS (2)
  1. CARDURA XL [Suspect]
     Indication: ILL-DEFINED DISORDER
     Dosage: ORAL
     Route: 048
  2. PRAMIPEXOLE (PRAMIPEXOLE) [Concomitant]

REACTIONS (2)
  - BALANCE DISORDER [None]
  - VIRAL LABYRINTHITIS [None]
